FAERS Safety Report 25062621 (Version 3)
Quarter: 2025Q4

REPORT INFORMATION
  Report Type: Spontaneous
  Country: US (occurrence: US)
  Receive Date: 20250311
  Receipt Date: 20251110
  Transmission Date: 20260119
  Serious: No
  Sender: KYOWA
  Company Number: US-KYOWAKIRIN-2025KK004470

PATIENT

DRUGS (2)
  1. CRYSVITA [Suspect]
     Active Substance: BUROSUMAB-TWZA
     Indication: Phosphorus metabolism disorder
     Dosage: 40 MG, 1X/2 WEEKS (EVERY 14 DAYS)
     Route: 058
     Dates: start: 202205
  2. CRYSVITA [Suspect]
     Active Substance: BUROSUMAB-TWZA
     Indication: Hereditary hypophosphataemic rickets
     Dosage: 40 MG, 1X/2 WEEKS (EVERY 14 DAYS)
     Route: 058

REACTIONS (5)
  - Headache [Unknown]
  - Nausea [Unknown]
  - Illness [Unknown]
  - Pain [Unknown]
  - Inappropriate schedule of product administration [Unknown]
